FAERS Safety Report 14216174 (Version 3)
Quarter: 2018Q1

REPORT INFORMATION
  Report Type: Spontaneous
  Country: DK (occurrence: DK)
  Receive Date: 20171122
  Receipt Date: 20180326
  Transmission Date: 20180508
  Serious: Yes (Hospitalization)
  Sender: FDA-Public Use
  Company Number: DK-ACORDA-ACO_144387_2017

PATIENT
  Sex: Female

DRUGS (1)
  1. QUTENZA [Suspect]
     Active Substance: CAPSAICIN
     Indication: PRODUCT USED FOR UNKNOWN INDICATION
     Dosage: UNK
     Route: 065
     Dates: start: 20171109

REACTIONS (12)
  - Hyperhidrosis [Unknown]
  - Occupational exposure to product [Unknown]
  - Upper respiratory tract irritation [Recovered/Resolved]
  - Hypersensitivity [Unknown]
  - Oral pruritus [Unknown]
  - Erythema [Unknown]
  - Dyspnoea [Unknown]
  - Painful respiration [Unknown]
  - Rash erythematous [Recovered/Resolved]
  - Wrong technique in product usage process [Unknown]
  - Hot flush [Unknown]
  - Oral pain [None]

NARRATIVE: CASE EVENT DATE: 20171109
